FAERS Safety Report 21025046 (Version 1)
Quarter: 2022Q2

REPORT INFORMATION
  Report Type: Report from Study
  Country: ES (occurrence: ES)
  Receive Date: 20220629
  Receipt Date: 20220629
  Transmission Date: 20220721
  Serious: Yes (Death, Hospitalization, Other)
  Sender: FDA-Public Use
  Company Number: ES-CELLTRION INC.-2022ES010187

PATIENT

DRUGS (30)
  1. RITUXIMAB [Suspect]
     Active Substance: RITUXIMAB
     Indication: B-cell lymphoma
     Dosage: 375 MG/M2, EVERY THREE WEEKS (DOSE TEXT: DRUG INTERRUPTED) (ADDITIONAL INFORMATION ON DRUG:DRUG INTE
     Route: 042
     Dates: start: 20210719, end: 20210719
  2. CYTARABINE [Suspect]
     Active Substance: CYTARABINE
     Indication: B-cell lymphoma
     Dosage: (DOSE TEXT: SINGLE REGIMEN 1) (ADDITIONAL INFORMATION ON DRUG:REGIMEN 1)
     Route: 042
     Dates: start: 20210720, end: 20210720
  3. DEXAMETHASONE SODIUM PHOSPHATE [Suspect]
     Active Substance: DEXAMETHASONE SODIUM PHOSPHATE
     Indication: B-cell lymphoma
     Dosage: 40 MG, 1 PER DAY (DOSE TEXT: REGIMEN 1 DRUG INTERRUPTED) (ADDITIONAL INFORMATION ON DRUG: REGIMEN 1)
     Route: 042
     Dates: start: 20210719
  4. EPCORITAMAB [Suspect]
     Active Substance: EPCORITAMAB
     Indication: B-cell lymphoma
     Dosage: (DOSE TEXT: PRIMING DOSE: 0.16MG, SINGLE DUOBODY-CD3XCD20, REGIMEN1 PRIOR TO THE EVENT ONSET, THE PA
     Route: 058
     Dates: start: 20210719, end: 20210719
  5. OXALIPLATIN [Suspect]
     Active Substance: OXALIPLATIN
     Indication: B-cell lymphoma
     Dosage: 100 MG/M2 ADDITIONAL INFORMATION ON DRUG: REGIMEN 1)
     Route: 042
     Dates: start: 20210719, end: 20210719
  6. NOREPINEPHRINE [Concomitant]
     Active Substance: NOREPINEPHRINE
     Dosage: UNK
     Dates: start: 20210829, end: 20210830
  7. METAMIZOLE [Concomitant]
     Active Substance: METAMIZOLE
     Dosage: UNK
     Dates: start: 20210823, end: 20210823
  8. INSULIN NOS [Concomitant]
     Active Substance: INSULIN NOS
     Dosage: UNK
     Dates: start: 20210725
  9. PREGABALIN [Concomitant]
     Active Substance: PREGABALIN
     Dosage: UNK
     Dates: start: 20210719
  10. HYDROCHLOROTHIAZIDE [Concomitant]
     Active Substance: HYDROCHLOROTHIAZIDE
     Dosage: UNK
     Dates: start: 20180208
  11. RASBURICASE [Concomitant]
     Active Substance: RASBURICASE
     Dosage: UNK
     Dates: start: 20210830, end: 20210830
  12. DEXCHLORPHENIRAMIN [DEXCHLORPHENIRAMINE] [Concomitant]
     Dosage: 5 MG
     Route: 042
     Dates: start: 20210719, end: 20210719
  13. AMIKACIN [Concomitant]
     Active Substance: AMIKACIN
  14. AMIKACIN [Concomitant]
     Active Substance: AMIKACIN
     Dosage: UNK
     Dates: start: 20210826
  15. LOSARTAN [Concomitant]
     Active Substance: LOSARTAN
     Dosage: UNK
     Dates: start: 20180208
  16. METHYLPREDNISOLONE [Concomitant]
     Active Substance: METHYLPREDNISOLONE
     Dosage: UNK
     Dates: start: 20210830, end: 20210830
  17. COVID-19 VACCINE [Concomitant]
     Dosage: UNK
  18. COVID-19 VACCINE [Concomitant]
     Dosage: 1ST DOSE
     Dates: start: 20210616
  19. COVID-19 VACCINE [Concomitant]
     Dosage: 2ND DOSE
     Dates: start: 20210804
  20. MEROPENEM [Concomitant]
     Active Substance: MEROPENEM
     Dosage: UNK
     Dates: start: 20210829, end: 20210911
  21. CEFTRIAXONE [Concomitant]
     Active Substance: CEFTRIAXONE
     Dosage: UNK
     Dates: start: 20210824, end: 20210904
  22. ACETAMINOPHEN [Concomitant]
     Active Substance: ACETAMINOPHEN
     Dosage: UNK
     Dates: start: 20210823, end: 20210823
  23. ACETAMINOPHEN [Concomitant]
     Active Substance: ACETAMINOPHEN
     Dosage: 1 G
     Route: 048
     Dates: start: 20210719, end: 20210719
  24. AMIODARONE [Concomitant]
     Active Substance: AMIODARONE
     Dosage: UNK
     Dates: start: 20210830, end: 20210830
  25. AMIODARONE [Concomitant]
     Active Substance: AMIODARONE
     Dosage: AMIODARONE BOLUS
  26. ADENOSINE [Concomitant]
     Active Substance: ADENOSINE
     Dosage: UNK
     Dates: start: 20210830, end: 20210830
  27. CYCLOPHOSPHAMIDE [Concomitant]
     Active Substance: CYCLOPHOSPHAMIDE
     Dosage: UNK
     Dates: start: 20200327, end: 20200610
  28. CYCLOPHOSPHAMIDE [Concomitant]
     Active Substance: CYCLOPHOSPHAMIDE
     Dosage: UNK
     Dates: start: 20210830, end: 20210830
  29. POSACONAZOLE [Concomitant]
     Active Substance: POSACONAZOLE
     Dosage: UNK
     Dates: start: 20210722
  30. MOVICOL [Concomitant]
     Active Substance: POLYETHYLENE GLYCOL 3350\POTASSIUM CHLORIDE\SODIUM BICARBONATE\SODIUM CHLORIDE
     Dosage: UNK
     Dates: start: 20210812, end: 20210812

REACTIONS (2)
  - Immune effector cell-associated neurotoxicity syndrome [Fatal]
  - Disease progression [Fatal]

NARRATIVE: CASE EVENT DATE: 20210721
